FAERS Safety Report 25105088 (Version 5)
Quarter: 2025Q2

REPORT INFORMATION
  Report Type: Spontaneous
  Country: JP (occurrence: JP)
  Receive Date: 20250321
  Receipt Date: 20250621
  Transmission Date: 20250717
  Serious: Yes (Death, Hospitalization, Other)
  Sender: UNITED THERAPEUTICS
  Company Number: JP-UNITED THERAPEUTICS-UNT-2025-007557

PATIENT
  Age: 74 Year
  Sex: Male

DRUGS (8)
  1. TYVASO [Suspect]
     Active Substance: TREPROSTINIL
     Indication: Pulmonary hypertension
     Dosage: 48 ?G, QID
     Dates: start: 20241202
  2. TYVASO [Suspect]
     Active Substance: TREPROSTINIL
     Indication: Idiopathic pulmonary fibrosis
     Dosage: 66 ?G, QID
     Dates: end: 20250504
  3. TYVASO [Suspect]
     Active Substance: TREPROSTINIL
     Indication: Lung disorder
  4. TYVASO [Suspect]
     Active Substance: TREPROSTINIL
     Indication: Hypoxia
  5. ATORVASTATIN [Concomitant]
     Active Substance: ATORVASTATIN
     Indication: Product used for unknown indication
  6. NEUROTROPIN [Concomitant]
     Active Substance: NEUROTROPIN
     Indication: Product used for unknown indication
  7. TADALAFIL [Concomitant]
     Active Substance: TADALAFIL
     Indication: Product used for unknown indication
  8. OPSUMIT [Concomitant]
     Active Substance: MACITENTAN
     Indication: Product used for unknown indication

REACTIONS (3)
  - Pulmonary hypertension [Fatal]
  - Dyspnoea [Fatal]
  - Pyrexia [Fatal]

NARRATIVE: CASE EVENT DATE: 20250201
